FAERS Safety Report 20074637 (Version 14)
Quarter: 2024Q4

REPORT INFORMATION
  Report Type: Spontaneous
  Country: US (occurrence: US)
  Receive Date: 20211116
  Receipt Date: 20241213
  Transmission Date: 20250114
  Serious: Yes (Other)
  Sender: PFIZER
  Company Number: US-PFIZER INC-202101512607

PATIENT
  Age: 63 Year
  Sex: Female
  Weight: 97.52 kg

DRUGS (2)
  1. XALKORI [Suspect]
     Active Substance: CRIZOTINIB
     Indication: Anaplastic large cell lymphoma T- and null-cell types
     Dosage: 250 MG, 2X/DAY (MORNING AND NIGHT)/TAKE 2 CAPSULES BY MOUTH TWICE DAILY
     Route: 048
     Dates: start: 202104
  2. XALKORI [Suspect]
     Active Substance: CRIZOTINIB
     Dosage: 1 P.O. (PER ORAL) Q. (ONCE) DAY
     Route: 048

REACTIONS (10)
  - Loss of consciousness [Not Recovered/Not Resolved]
  - Dizziness [Not Recovered/Not Resolved]
  - Diarrhoea [Not Recovered/Not Resolved]
  - Tremor [Unknown]
  - Dyspepsia [Not Recovered/Not Resolved]
  - Throat irritation [Unknown]
  - Constipation [Unknown]
  - Oesophageal pain [Unknown]
  - Off label use [Unknown]
  - Product prescribing issue [Unknown]

NARRATIVE: CASE EVENT DATE: 20210101
